FAERS Safety Report 8914261 (Version 3)
Quarter: 2014Q2

REPORT INFORMATION
  Report Type: Report from Study
  Country: CA (occurrence: CA)
  Receive Date: 20121119
  Receipt Date: 20140417
  Transmission Date: 20141212
  Serious: Yes (Death, Other)
  Sender: FDA-Public Use
  Company Number: CA-JNJFOC-20121105168

PATIENT
  Age: 74 Year
  Sex: Female
  Weight: 64 kg

DRUGS (1)
  1. REMICADE [Suspect]
     Indication: RHEUMATOID ARTHRITIS
     Route: 042
     Dates: start: 2004

REACTIONS (2)
  - Death [Fatal]
  - Lung neoplasm malignant [Not Recovered/Not Resolved]
